FAERS Safety Report 8986645 (Version 1)
Quarter: 2012Q4

REPORT INFORMATION
  Report Type: Spontaneous
  Country: US (occurrence: None)
  Receive Date: 20121217
  Receipt Date: 20121217
  Transmission Date: 20130627
  Serious: Yes (Other)
  Sender: FDA-Public Use
  Company Number: DKLU1086654

PATIENT
  Age: 24 Year
  Sex: Male
  Weight: 100 kg

DRUGS (7)
  1. ONFI (CLOBAZAM) (CLOBAZAM) (10 MG, TABLET) [Suspect]
     Indication: COMPLEX PARTIAL SEIZURES
     Route: 048
     Dates: start: 20121026
  2. ONFI (CLOBAZAM) (CLOBAZAM) (10 MG, TABLET) [Suspect]
     Indication: GRAND MAL CONVULSION
     Route: 048
     Dates: start: 20121026
  3. ONFI (CLOBAZAM) (CLOBAZAM) (10 MG, TABLET) [Suspect]
     Route: 048
     Dates: start: 20121026
  4. LAMICTAL [Suspect]
     Indication: PRODUCT USED FOR UNKNOWN INDICATION
     Dosage: 100 mg milligram(s), AM
200 mg.pm
50 mg
  5. LAMICTAL [Suspect]
     Indication: PRODUCT USED FOR UNKNOWN INDICATION
     Dosage: 100 mg milligram(s), Afternoon
  6. LAMICTAL [Suspect]
     Indication: PRODUCT USED FOR UNKNOWN INDICATION
     Dosage: 200 mg milligram(s), PM
  7. LAMICTAL [Suspect]
     Indication: PRODUCT USED FOR UNKNOWN INDICATION

REACTIONS (3)
  - Grand mal convulsion [None]
  - Loss of consciousness [None]
  - Drug effect decreased [None]
